FAERS Safety Report 7148450-7 (Version None)
Quarter: 2010Q4

REPORT INFORMATION
  Report Type: 
  Country: None (occurrence: None)
  Receive Date: 20101209
  Receipt Date: 20101126
  Transmission Date: 20110411
  Serious: Yes (Hospitalization)
  Sender: FDA-Public Use
  Company Number: PHHY2010DE82621

PATIENT
  Age: 89 Year
  Sex: Female

DRUGS (3)
  1. DIOVAN HCT [Suspect]
     Indication: MYOCARDIAL INFARCTION
     Dosage: 1 TABLET IN THE MORNING
     Route: 048
     Dates: end: 20101129
  2. METOPROLOL SUCCINATE [Concomitant]
     Indication: MYOCARDIAL INFARCTION
  3. CRATAEGUTT [Concomitant]
     Dosage: UNK

REACTIONS (11)
  - ATRIAL FIBRILLATION [None]
  - CARDIOMEGALY [None]
  - CONJUNCTIVITIS [None]
  - DYSPNOEA [None]
  - ERYTHEMA [None]
  - FALL [None]
  - GAIT DISTURBANCE [None]
  - LACRIMATION INCREASED [None]
  - PALPITATIONS [None]
  - PRURITUS [None]
  - TACHYCARDIA [None]
